FAERS Safety Report 24936892 (Version 1)
Quarter: 2025Q1

REPORT INFORMATION
  Report Type: Spontaneous
  Country: US (occurrence: US)
  Receive Date: 20250206
  Receipt Date: 20250206
  Transmission Date: 20250408
  Serious: Yes (Life-Threatening, Hospitalization)
  Sender: MYLAN
  Company Number: US-MYLANLABS-2025M1009212

PATIENT
  Age: 6 Year
  Sex: Female

DRUGS (22)
  1. LEVETIRACETAM [Suspect]
     Active Substance: LEVETIRACETAM
     Indication: Status epilepticus
     Route: 065
  2. LEVETIRACETAM [Suspect]
     Active Substance: LEVETIRACETAM
     Dosage: 74.1 MILLIGRAM/KILOGRAM, QD
     Route: 065
  3. LEVETIRACETAM [Suspect]
     Active Substance: LEVETIRACETAM
     Dosage: 100 MILLIGRAM/KILOGRAM, QD
     Route: 065
  4. KETAMINE [Suspect]
     Active Substance: KETAMINE
     Indication: Status epilepticus
     Route: 065
  5. VALPROIC ACID [Suspect]
     Active Substance: VALPROIC ACID
     Indication: Status epilepticus
     Dosage: 22.6 MILLIGRAM/KILOGRAM, QD
     Route: 065
  6. DIAZEPAM [Suspect]
     Active Substance: DIAZEPAM
     Indication: Status epilepticus
     Dosage: 0.4 MILLIGRAM/KILOGRAM, QD
     Route: 065
  7. LORAZEPAM [Suspect]
     Active Substance: LORAZEPAM
     Indication: Status epilepticus
     Route: 065
  8. LORAZEPAM [Suspect]
     Active Substance: LORAZEPAM
     Dosage: 0.4 MILLIGRAM/KILOGRAM, QD
     Route: 065
  9. FOSPHENYTOIN [Suspect]
     Active Substance: FOSPHENYTOIN
     Indication: Status epilepticus
     Route: 065
  10. LACOSAMIDE [Suspect]
     Active Substance: LACOSAMIDE
     Indication: Status epilepticus
     Route: 065
  11. LACOSAMIDE [Suspect]
     Active Substance: LACOSAMIDE
     Dosage: 11 MILLIGRAM/KILOGRAM, QD
     Route: 065
  12. MIDAZOLAM [Suspect]
     Active Substance: MIDAZOLAM
     Indication: Status epilepticus
     Route: 065
  13. MIDAZOLAM [Suspect]
     Active Substance: MIDAZOLAM
     Dosage: 0.2 MILLIGRAM/KILOGRAM, QH
     Route: 065
  14. TOPIRAMATE [Suspect]
     Active Substance: TOPIRAMATE
     Indication: Status epilepticus
     Route: 065
  15. PHENOBARBITAL [Suspect]
     Active Substance: PHENOBARBITAL
     Indication: Status epilepticus
     Route: 065
  16. PHENOBARBITAL [Suspect]
     Active Substance: PHENOBARBITAL
     Dosage: 5.7 MILLIGRAM/KILOGRAM, QD
     Route: 065
  17. CLONAZEPAM [Suspect]
     Active Substance: CLONAZEPAM
     Indication: Status epilepticus
     Dosage: 0.2 MILLIGRAM/KILOGRAM, QD
     Route: 065
  18. CLONAZEPAM [Suspect]
     Active Substance: CLONAZEPAM
     Dosage: 0.09 MILLIGRAM/KILOGRAM, QD
     Route: 065
  19. SOLU-MEDROL [Suspect]
     Active Substance: METHYLPREDNISOLONE SODIUM SUCCINATE
     Indication: Status epilepticus
     Route: 065
  20. DEXAMETHASONE [Concomitant]
     Active Substance: DEXAMETHASONE
     Indication: Multisystem inflammatory syndrome in children
     Route: 065
  21. Immunoglobulin [Concomitant]
     Indication: Multisystem inflammatory syndrome in children
     Route: 042
  22. ANAKINRA [Concomitant]
     Active Substance: ANAKINRA
     Indication: Multisystem inflammatory syndrome in children
     Route: 065

REACTIONS (1)
  - Drug ineffective [Unknown]
